FAERS Safety Report 24308263 (Version 1)
Quarter: 2024Q3

REPORT INFORMATION
  Report Type: Report from Study
  Country: JP (occurrence: JP)
  Receive Date: 20240911
  Receipt Date: 20240911
  Transmission Date: 20241016
  Serious: Yes (Death, Other)
  Sender: GILEAD
  Company Number: JP-GILEAD-2024-0686610

PATIENT
  Age: 68 Year
  Sex: Male

DRUGS (1)
  1. AXICABTAGENE CILOLEUCEL [Suspect]
     Active Substance: AXICABTAGENE CILOLEUCEL
     Indication: Product used for unknown indication
     Dosage: UNK
     Route: 042
     Dates: start: 20230814, end: 20230814

REACTIONS (5)
  - Disease progression [Fatal]
  - Cytokine release syndrome [Recovered/Resolved]
  - Platelet count decreased [Unknown]
  - Hypotension [Unknown]
  - Pyrexia [Unknown]

NARRATIVE: CASE EVENT DATE: 20230816
